FAERS Safety Report 9552784 (Version 3)
Quarter: 2013Q4

REPORT INFORMATION
  Report Type: Spontaneous
  Country: US (occurrence: None)
  Receive Date: 20130916
  Receipt Date: 20131112
  Transmission Date: 20140711
  Serious: Yes (Hospitalization, Other)
  Sender: FDA-Public Use
  Company Number: 2013037953

PATIENT
  Sex: Female

DRUGS (1)
  1. HIZENTRA [Suspect]
     Dosage: 1X/WEEK
     Route: 058

REACTIONS (4)
  - Clostridium difficile infection [None]
  - Meningitis [None]
  - Infection [None]
  - Colitis [None]
